FAERS Safety Report 8017743-3 (Version None)
Quarter: 2012Q1

REPORT INFORMATION
  Report Type: 
  Country: None (occurrence: None)
  Receive Date: 20120103
  Receipt Date: 20111229
  Transmission Date: 20120608
  Serious: No
  Sender: FDA-Public Use
  Company Number: US-PFIZER INC-2011316180

PATIENT
  Sex: Female
  Weight: 69.4 kg

DRUGS (3)
  1. CELEBREX [Suspect]
     Indication: SPONDYLITIS
  2. CELEBREX [Suspect]
     Indication: INTERVERTEBRAL DISC PROTRUSION
     Dosage: 200 MG, DAILY
     Route: 048
     Dates: start: 20111001
  3. HYDROCHLOROTHIAZIDE [Concomitant]
     Indication: HYPERTENSION
     Dosage: 25 MG, DAILY

REACTIONS (1)
  - ANXIETY [None]
